FAERS Safety Report 18625389 (Version 3)
Quarter: 2021Q2

REPORT INFORMATION
  Report Type: Spontaneous
  Country: US (occurrence: US)
  Receive Date: 20201216
  Receipt Date: 20210617
  Transmission Date: 20210717
  Serious: No
  Sender: FDA-Public Use
  Company Number: US-CATALYST PHARMACEUTICALS, INC-2020CAT00541

PATIENT
  Age: 81 Year
  Sex: Male
  Weight: 83.9 kg

DRUGS (16)
  1. SIMVASTATIN. [Concomitant]
     Active Substance: SIMVASTATIN
     Dosage: UNK, 1X/DAY
  2. FIRDAPSE [Suspect]
     Active Substance: AMIFAMPRIDINE PHOSPHATE
     Indication: MYASTHENIC SYNDROME
     Dosage: 15 MG PER DAY
     Route: 048
     Dates: start: 202007, end: 2020
  3. FIRDAPSE [Suspect]
     Active Substance: AMIFAMPRIDINE PHOSPHATE
     Dosage: 20 MG, 5X/DAY
     Route: 048
  4. METHIMAZOLE. [Concomitant]
     Active Substance: METHIMAZOLE
     Dosage: 2.5 MG, EVERY 48 HOURS ALTERNATING WITH 5 MG
  5. ASPIRIN. [Concomitant]
     Active Substance: ASPIRIN
     Dosage: ^RARELY^
  6. FIRDAPSE [Suspect]
     Active Substance: AMIFAMPRIDINE PHOSPHATE
     Dosage: 50 MG PER DAY
     Route: 048
     Dates: start: 2020, end: 20201015
  7. MYCOPHENOLATE [Concomitant]
     Active Substance: MYCOPHENOLIC ACID
     Dosage: 1000 MG, 2X/DAY IN THE MORNING AND IN THE AFTERNOON
  8. ZYRTEC [Concomitant]
     Active Substance: CETIRIZINE HYDROCHLORIDE
     Dosage: UNK, AS NEEDED
  9. SIMVASTATIN. [Concomitant]
     Active Substance: SIMVASTATIN
     Dosage: ^OCCASIONALLY^
  10. FIRDAPSE [Suspect]
     Active Substance: AMIFAMPRIDINE PHOSPHATE
     Dosage: 30 MG PER DAY
     Route: 048
     Dates: start: 2020, end: 2020
  11. FIRDAPSE [Suspect]
     Active Substance: AMIFAMPRIDINE PHOSPHATE
     Dosage: 20 MG, 4X/DAY
     Route: 048
     Dates: start: 20201209
  12. FIRDAPSE [Suspect]
     Active Substance: AMIFAMPRIDINE PHOSPHATE
     Dosage: 20 MG, 3X/DAY
     Route: 048
     Dates: start: 20201016, end: 20201208
  13. FIRDAPSE [Suspect]
     Active Substance: AMIFAMPRIDINE PHOSPHATE
     Dosage: 10 MG, 1X/DAY (IN ADDITION TO 20 MG 4X/DAY)
     Route: 048
     Dates: start: 202012
  14. METHIMAZOLE. [Concomitant]
     Active Substance: METHIMAZOLE
     Dosage: 5 MG, EVERY 48 HOURS ALTERNATING WITH 2.5 MG
  15. MESTINON [Concomitant]
     Active Substance: PYRIDOSTIGMINE BROMIDE
     Dosage: 120 MG, 2X/DAY IN THE MORNING AND IN THE AFTERNOON
  16. MUCINEX [Concomitant]
     Active Substance: GUAIFENESIN
     Dosage: UNK, AS NEEDED

REACTIONS (8)
  - Peripheral coldness [Not Recovered/Not Resolved]
  - Hypoaesthesia oral [Not Recovered/Not Resolved]
  - Overdose [Not Recovered/Not Resolved]
  - Chills [Not Recovered/Not Resolved]
  - Drug ineffective [Not Recovered/Not Resolved]
  - Paraesthesia oral [Not Recovered/Not Resolved]
  - Muscular weakness [Not Recovered/Not Resolved]
  - Paraesthesia [Not Recovered/Not Resolved]

NARRATIVE: CASE EVENT DATE: 2020
